FAERS Safety Report 9460963 (Version 1)
Quarter: 2013Q3

REPORT INFORMATION
  Report Type: Spontaneous
  Country: US (occurrence: US)
  Receive Date: 20130816
  Receipt Date: 20130816
  Transmission Date: 20140515
  Serious: No
  Sender: FDA-Public Use
  Company Number: US-BIOGENIDEC-2013BI075075

PATIENT
  Sex: Female

DRUGS (2)
  1. TYSABRI [Suspect]
     Indication: MULTIPLE SCLEROSIS
     Route: 042
     Dates: start: 20110517, end: 20110815
  2. TYSABRI [Suspect]
     Indication: MULTIPLE SCLEROSIS
     Route: 042
     Dates: start: 20130221

REACTIONS (8)
  - Hallucination, auditory [Unknown]
  - Insomnia [Unknown]
  - Muscle spasms [Unknown]
  - Amnesia [Unknown]
  - Emotional disorder [Unknown]
  - Depressed mood [Unknown]
  - Crying [Unknown]
  - Psychiatric symptom [Unknown]
